FAERS Safety Report 15783722 (Version 1)
Quarter: 2019Q1

REPORT INFORMATION
  Report Type: Report from Study
  Country: US (occurrence: US)
  Receive Date: 20190102
  Receipt Date: 20190102
  Transmission Date: 20190417
  Serious: Yes (Hospitalization)
  Sender: FDA-Public Use
  Company Number: US-ACTELION-A-NJ2016-145094

PATIENT
  Age: 73 Year
  Sex: Female

DRUGS (7)
  1. UPTRAVI [Suspect]
     Active Substance: SELEXIPAG
     Dosage: 1600 MCG, BID
     Route: 048
  2. AMLODIPINE [Concomitant]
     Active Substance: AMLODIPINE BESYLATE
  3. UPTRAVI [Suspect]
     Active Substance: SELEXIPAG
     Indication: PULMONARY ARTERIAL HYPERTENSION
     Dosage: 800 MCG, BID
     Route: 048
  4. UPTRAVI [Suspect]
     Active Substance: SELEXIPAG
     Dosage: 1000 MCG, BID
     Route: 048
     Dates: start: 20170210
  5. UPTRAVI [Suspect]
     Active Substance: SELEXIPAG
     Dosage: 1200 MCG,BID
     Route: 048
  6. UPTRAVI [Suspect]
     Active Substance: SELEXIPAG
     Dosage: 600 MCG, BID
     Route: 048
     Dates: start: 20160927
  7. UPTRAVI [Suspect]
     Active Substance: SELEXIPAG
     Dosage: 600 MCG, BID
     Route: 048
     Dates: start: 20170428

REACTIONS (36)
  - Oral discomfort [Unknown]
  - Pruritus [Unknown]
  - Arthralgia [Unknown]
  - Burning sensation [Unknown]
  - Tongue erythema [Unknown]
  - Abdominal pain upper [Unknown]
  - Osteoarthritis [Unknown]
  - Myalgia [Unknown]
  - Pulmonary thrombosis [Unknown]
  - Insomnia [Unknown]
  - Fibromyalgia [Unknown]
  - Headache [Unknown]
  - Dyspnoea [Unknown]
  - Flatulence [Unknown]
  - Dry eye [Unknown]
  - Gastrooesophageal reflux disease [Unknown]
  - Malaise [Unknown]
  - Influenza like illness [Unknown]
  - Heart rate increased [Unknown]
  - Bone pain [Unknown]
  - Vomiting [Unknown]
  - Restlessness [Unknown]
  - Pruritus generalised [Unknown]
  - Depression [Unknown]
  - Urine odour abnormal [Unknown]
  - Chest pain [Unknown]
  - Pain [Unknown]
  - Vision blurred [Unknown]
  - Dyspepsia [Unknown]
  - Spinal column stenosis [Unknown]
  - Intervertebral disc disorder [Unknown]
  - Nasopharyngitis [Unknown]
  - Diarrhoea [Unknown]
  - Pain in jaw [Unknown]
  - Sinusitis [Unknown]
  - Constipation [Unknown]

NARRATIVE: CASE EVENT DATE: 20161031
